FAERS Safety Report 4689898-X (Version None)
Quarter: 2005Q2

REPORT INFORMATION
  Report Type: 
  Country: None (occurrence: None)
  Receive Date: 20050608
  Receipt Date: 20050209
  Transmission Date: 20051028
  Serious: No
  Sender: FDA-Public Use
  Company Number: 2005-BP-02072BP

PATIENT
  Age: 57 Year
  Sex: Female

DRUGS (18)
  1. SPIRIVA [Suspect]
     Indication: CHRONIC OBSTRUCTIVE PULMONARY DISEASE
     Dosage: 18 MCG (18 MCG), IH
     Route: 055
     Dates: start: 20050126, end: 20050128
  2. OXYGEN [Concomitant]
  3. THEO-DUR [Concomitant]
  4. EFFEXOR [Concomitant]
  5. THEOPHYLLINE [Concomitant]
  6. NAPROXEN [Concomitant]
  7. VALIUM [Concomitant]
  8. QUININE SULFATE [Concomitant]
  9. DOXYCYCLINE [Concomitant]
  10. ALBUTEROL [Concomitant]
  11. ADVAIR DISKUS 100/50 [Concomitant]
  12. PREMPRO 14/14 [Concomitant]
  13. PREDNISONE TAB [Concomitant]
  14. ATARAX [Concomitant]
  15. SINGULAIR (MONTELUKAST) [Concomitant]
  16. PREVACID [Concomitant]
  17. SOMA [Concomitant]
  18. DALMANE [Concomitant]

REACTIONS (2)
  - DYSPHONIA [None]
  - STOMATITIS [None]
